FAERS Safety Report 9439139 (Version 1)
Quarter: 2013Q3

REPORT INFORMATION
  Report Type: Report from Study
  Country: US (occurrence: US)
  Receive Date: 20130802
  Receipt Date: 20130802
  Transmission Date: 20140515
  Serious: Yes (Hospitalization)
  Sender: FDA-Public Use
  Company Number: US-ROCHE-1255824

PATIENT
  Age: 61 Year
  Sex: Female
  Weight: 54.48 kg

DRUGS (5)
  1. HERCEPTIN [Suspect]
     Indication: BREAST CANCER METASTATIC
     Route: 042
     Dates: start: 20130717
  2. TAXOTERE [Concomitant]
  3. CARBOPLATIN [Concomitant]
     Indication: BREAST CANCER METASTATIC
     Route: 042
     Dates: start: 20130717
  4. VANCOMYCIN [Concomitant]
     Indication: ANTIBIOTIC THERAPY
     Route: 042
  5. BENADRYL (UNITED STATES) [Concomitant]

REACTIONS (2)
  - Catheter site infection [Unknown]
  - Red man syndrome [Recovering/Resolving]
